FAERS Safety Report 8293265-X (Version None)
Quarter: 2012Q2

REPORT INFORMATION
  Report Type: 
  Country: None (occurrence: None)
  Receive Date: 20120417
  Receipt Date: 20110414
  Transmission Date: 20120825
  Serious: No
  Sender: FDA-Public Use
  Company Number: US-ASTRAZENECA-2011SE12015

PATIENT
  Age: 61 Year
  Sex: Female

DRUGS (4)
  1. NEXIUM [Suspect]
     Indication: GASTRIC ULCER
     Route: 048
  2. REGLAN [Concomitant]
     Indication: GASTRIC ULCER
  3. CARAFATE [Concomitant]
     Indication: GASTRIC ULCER
  4. NEXIUM [Suspect]
     Route: 048

REACTIONS (6)
  - GASTRIC ULCER [None]
  - OROPHARYNGEAL PAIN [None]
  - DRUG DOSE OMISSION [None]
  - DYSPEPSIA [None]
  - THROAT IRRITATION [None]
  - DYSPHONIA [None]
